FAERS Safety Report 23117047 (Version 1)
Quarter: 2023Q4

REPORT INFORMATION
  Report Type: Report from Study
  Country: TW (occurrence: None)
  Receive Date: 20231027
  Receipt Date: 20231027
  Transmission Date: 20240110
  Serious: Yes (Death, Life-Threatening, Other)
  Sender: FDA-Public Use
  Company Number: 2023A239480

PATIENT
  Age: 22085 Day
  Sex: Female

DRUGS (2)
  1. IMFINZI [Suspect]
     Active Substance: DURVALUMAB
     Indication: Lung neoplasm malignant
     Dosage: 1500.0MG UNKNOWN
     Route: 042
     Dates: start: 20230803
  2. IMFINZI [Suspect]
     Active Substance: DURVALUMAB
     Indication: Lung neoplasm malignant
     Dosage: 1500.0MG UNKNOWN
     Route: 042
     Dates: start: 20230804

REACTIONS (10)
  - White blood cell count decreased [Unknown]
  - Decreased appetite [Unknown]
  - Pyrexia [Unknown]
  - Platelet count decreased [Unknown]
  - Tachycardia [Unknown]
  - Infection [Unknown]
  - Dyspnoea [Unknown]
  - Loss of consciousness [Unknown]
  - Haemoglobin decreased [Unknown]
  - Drug ineffective [Fatal]

NARRATIVE: CASE EVENT DATE: 20230804
